FAERS Safety Report 9710575 (Version 1)
Quarter: 2013Q4

REPORT INFORMATION
  Report Type: Spontaneous
  Country: US (occurrence: US)
  Receive Date: 20131126
  Receipt Date: 20131126
  Transmission Date: 20140711
  Serious: No
  Sender: FDA-Public Use
  Company Number: US-BRISTOL-MYERS SQUIBB COMPANY-18909911

PATIENT
  Age: 58 Year
  Sex: Female

DRUGS (7)
  1. BYDUREON 2MG SUSPENSION [Suspect]
  2. BYETTA [Suspect]
  3. CLONAZEPAM [Concomitant]
  4. LISINOPRIL [Concomitant]
  5. SIMVASTATIN [Concomitant]
  6. PAXIL [Concomitant]
  7. ABILIFY [Concomitant]

REACTIONS (1)
  - Drug ineffective [Unknown]
